FAERS Safety Report 7227929-3 (Version None)
Quarter: 2011Q1

REPORT INFORMATION
  Report Type: 
  Country: None (occurrence: None)
  Receive Date: 20110114
  Receipt Date: 20110112
  Transmission Date: 20110831
  Serious: Yes (Death)
  Sender: FDA-Public Use
  Company Number: GR-PFIZER INC-2011007413

PATIENT
  Age: 86 Year
  Sex: Female
  Weight: 60 kg

DRUGS (7)
  1. NORADRENALINE [Suspect]
     Dosage: UNKNOWN
  2. LASIX [Suspect]
     Indication: DIURETIC THERAPY
     Dosage: UNKNOWN
  3. DOPAMINE [Suspect]
     Dosage: UNKNOWN
  4. BURINEX [Suspect]
     Indication: DIURETIC THERAPY
     Dosage: UNKNOWN
  5. PIPERACILLIN AND TAZOBACTAM [Suspect]
     Dosage: 4.5 G, 3X/DAY
     Route: 042
     Dates: start: 20090812, end: 20090818
  6. PIPERACILLIN AND TAZOBACTAM [Suspect]
     Dosage: 2.5 G, 4X/DAY
     Route: 042
     Dates: start: 20090819, end: 20090826
  7. LEVOFLOXACIN [Suspect]
     Indication: ABDOMINAL INFECTION
     Dosage: 500 MG, 2X/DAY
     Route: 042
     Dates: start: 20090818, end: 20090902

REACTIONS (1)
  - DEATH [None]
